FAERS Safety Report 21754013 (Version 1)
Quarter: 2022Q4

REPORT INFORMATION
  Report Type: Spontaneous
  Country: US (occurrence: US)
  Receive Date: 20221220
  Receipt Date: 20221220
  Transmission Date: 20230113
  Serious: No
  Sender: FDA-Public Use
  Company Number: US-TEVA-2022-US-2835246

PATIENT
  Age: 70 Year
  Sex: Male
  Weight: 77.11 kg

DRUGS (4)
  1. PROAIR HFA [Suspect]
     Active Substance: ALBUTEROL SULFATE
     Indication: Emphysema
     Route: 055
     Dates: start: 2001
  2. PROAIR HFA [Suspect]
     Active Substance: ALBUTEROL SULFATE
  3. ALBUTEROL SULFATE [Interacting]
     Active Substance: ALBUTEROL SULFATE
     Indication: Product used for unknown indication
     Route: 055
  4. ALBUTEROL SULFATE [Interacting]
     Active Substance: ALBUTEROL SULFATE

REACTIONS (3)
  - Lung disorder [Unknown]
  - Drug ineffective [Unknown]
  - Product used for unknown indication [Unknown]
